FAERS Safety Report 18764272 (Version 1)
Quarter: 2021Q1

REPORT INFORMATION
  Report Type: Spontaneous
  Country: KR (occurrence: KR)
  Receive Date: 20210120
  Receipt Date: 20210120
  Transmission Date: 20210419
  Serious: Yes (Other)
  Sender: FDA-Public Use
  Company Number: NVSC2021KR007802

PATIENT
  Age: 76 Year
  Sex: Male

DRUGS (2)
  1. ELTROMBOPAG [Suspect]
     Active Substance: ELTROMBOPAG
     Dosage: UNK
     Route: 065
     Dates: start: 20200416
  2. ELTROMBOPAG [Suspect]
     Active Substance: ELTROMBOPAG
     Indication: APLASTIC ANAEMIA
     Dosage: 100 MG, QD
     Route: 065
     Dates: start: 20190904, end: 20191016

REACTIONS (7)
  - Haematoma infection [Unknown]
  - Soft tissue sarcoma [Unknown]
  - Haematoma [Unknown]
  - Tumour haemorrhage [Unknown]
  - Abscess [Unknown]
  - Paroxysmal nocturnal haemoglobinuria [Unknown]
  - Hypoxic-ischaemic encephalopathy [Unknown]

NARRATIVE: CASE EVENT DATE: 20200115
